FAERS Safety Report 11071978 (Version 1)
Quarter: 2015Q2

REPORT INFORMATION
  Report Type: Spontaneous
  Country: US (occurrence: None)
  Receive Date: 20150427
  Receipt Date: 20150427
  Transmission Date: 20150821
  Serious: Yes (Other)
  Sender: FDA-Public Use
  Company Number: None

PATIENT
  Age: 53 Year
  Sex: Female
  Weight: 48.54 kg

DRUGS (7)
  1. CALCIUM [Concomitant]
     Active Substance: CALCIUM
  2. VITAMIN D [Concomitant]
     Active Substance: CHOLECALCIFEROL
  3. BRISDELLE [Suspect]
     Active Substance: PAROXETINE MESYLATE
     Indication: HOT FLUSH
     Dosage: AT BEDTIME
     Route: 048
     Dates: start: 20141202, end: 201504
  4. SYNTHROID [Concomitant]
     Active Substance: LEVOTHYROXINE SODIUM
  5. BRISDELLE [Suspect]
     Active Substance: PAROXETINE MESYLATE
     Indication: MENOPAUSE
     Dosage: AT BEDTIME
     Route: 048
     Dates: start: 20141202, end: 201504
  6. VITAMIN B [Concomitant]
     Active Substance: VITAMIN B
  7. VITAMIN C [Concomitant]
     Active Substance: ASCORBIC ACID

REACTIONS (8)
  - Nausea [None]
  - Diarrhoea [None]
  - Confusional state [None]
  - Paraesthesia [None]
  - Abnormal dreams [None]
  - Drug withdrawal syndrome [None]
  - Dizziness [None]
  - Influenza like illness [None]

NARRATIVE: CASE EVENT DATE: 20150424
